FAERS Safety Report 6470268-9 (Version None)
Quarter: 2009Q4

REPORT INFORMATION
  Report Type: 
  Country: None (occurrence: None)
  Receive Date: 20091118
  Receipt Date: 20090821
  Transmission Date: 20100525
  Serious: Yes (Hospitalization)
  Sender: FDA-Public Use
  Company Number: 2009BI026832

PATIENT
  Sex: Male

DRUGS (1)
  1. TYSABRI [Suspect]

REACTIONS (2)
  - COMPLEX PARTIAL SEIZURES [None]
  - MENTAL STATUS CHANGES [None]
